FAERS Safety Report 21481161 (Version 1)
Quarter: 2022Q4

REPORT INFORMATION
  Report Type: Report from Study
  Country: US (occurrence: US)
  Receive Date: 20221019
  Receipt Date: 20221019
  Transmission Date: 20230113
  Serious: Yes (Other)
  Sender: FDA-Public Use
  Company Number: US-ABBVIE-22K-163-4459170-00

PATIENT
  Age: 66 Year
  Sex: Male

DRUGS (1)
  1. IMBRUVICA [Suspect]
     Active Substance: IBRUTINIB
     Indication: Chronic lymphocytic leukaemia
     Dosage: TIME INTERVAL: 0.33333333 DAYS: 420 MILLIGRAM?STRENGTH- 140 MG
     Route: 048
     Dates: start: 20180716

REACTIONS (6)
  - Lung neoplasm malignant [Unknown]
  - Haemorrhage [Unknown]
  - Lung disorder [Unknown]
  - Pneumonia [Unknown]
  - White blood cell count decreased [Unknown]
  - Skin discolouration [Unknown]

NARRATIVE: CASE EVENT DATE: 20220601
